FAERS Safety Report 17261670 (Version 1)
Quarter: 2020Q1

REPORT INFORMATION
  Report Type: Spontaneous
  Country: US (occurrence: US)
  Receive Date: 20200113
  Receipt Date: 20200113
  Transmission Date: 20200409
  Serious: Yes (Other)
  Sender: FDA-Public Use
  Company Number: US-LUPIN PHARMACEUTICALS INC.-2020-00053

PATIENT
  Age: 45 Year
  Sex: Male

DRUGS (1)
  1. PAROXETINE. [Suspect]
     Active Substance: PAROXETINE
     Indication: MAJOR DEPRESSION
     Dosage: 40 MILLIGRAM, QD
     Route: 065

REACTIONS (3)
  - Erectile dysfunction [Unknown]
  - Discomfort [Unknown]
  - Nervousness [Unknown]
